FAERS Safety Report 5203006-8 (Version None)
Quarter: 2006Q4

REPORT INFORMATION
  Report Type: 
  Country: None (occurrence: None)
  Receive Date: 20061016
  Receipt Date: 20051221
  Transmission Date: 20070319
  Serious: Yes (Other)
  Sender: FDA-Public Use
  Company Number: 2005172523

PATIENT
  Sex: Female

DRUGS (2)
  1. NEURONTIN [Suspect]
     Indication: BIPOLAR DISORDER
     Dosage: 2400 MG (800 MG, 3 IN 1 D), UNKNOWN
     Dates: start: 20011101
  2. NEURONTIN [Suspect]
     Indication: DEPRESSION
     Dosage: 2400 MG (800 MG, 3 IN 1 D), UNKNOWN
     Dates: start: 20011101

REACTIONS (1)
  - SUICIDE ATTEMPT [None]
